FAERS Safety Report 9210823 (Version 2)
Quarter: 2013Q3

REPORT INFORMATION
  Report Type: Spontaneous
  Country: US (occurrence: US)
  Receive Date: 20130404
  Receipt Date: 20130918
  Transmission Date: 20140515
  Serious: Yes (Hospitalization, Other)
  Sender: FDA-Public Use
  Company Number: US-BAYER-2013-040280

PATIENT
  Age: 38 Year
  Sex: Female

DRUGS (5)
  1. YAZ [Suspect]
     Dosage: UNK
     Route: 048
     Dates: start: 2007
  2. YASMIN [Suspect]
     Dosage: UNK
     Route: 048
     Dates: start: 2007
  3. OCELLA [Suspect]
     Dosage: UNK
     Route: 048
     Dates: start: 2007
  4. FEXOFENADINE [Concomitant]
     Dosage: 180 MG, UNK
     Route: 048
  5. LEVAQUIN [Concomitant]

REACTIONS (8)
  - Gallbladder disorder [None]
  - Cholelithiasis [None]
  - Injury [None]
  - Pain [None]
  - Emotional distress [None]
  - General physical health deterioration [None]
  - Anxiety [None]
  - Pain [None]
